FAERS Safety Report 11473537 (Version 1)
Quarter: 2015Q3

REPORT INFORMATION
  Report Type: Spontaneous
  Country: US (occurrence: None)
  Receive Date: 20150908
  Receipt Date: 20150908
  Transmission Date: 20151125
  Serious: Yes (Hospitalization, Disabling)
  Sender: FDA-Public Use
  Company Number: None

PATIENT
  Age: 76 Year
  Sex: Female
  Weight: 63.5 kg

DRUGS (9)
  1. FERROUS SULFATE [Concomitant]
     Active Substance: FERROUS SULFATE\FERROUS SULFATE, DRIED
  2. DIGOXIN. [Concomitant]
     Active Substance: DIGOXIN
  3. NORVOS [Concomitant]
  4. XANAX [Concomitant]
     Active Substance: ALPRAZOLAM
  5. METFORM [Concomitant]
  6. METOPROLOL [Concomitant]
     Active Substance: METOPROLOL
  7. PREDNISONE. [Concomitant]
     Active Substance: PREDNISONE
  8. PAXIL [Concomitant]
     Active Substance: PAROXETINE HYDROCHLORIDE
  9. METHOTREXATE (METHOTREXATE SODIUM) [Suspect]
     Active Substance: METHOTREXATE SODIUM
     Indication: PSORIATIC ARTHROPATHY
     Dosage: THERAPY DATE ?3/ /15?5/12/15?
     Route: 048
     Dates: end: 20150512

REACTIONS (3)
  - Pneumonia [None]
  - Dysphagia [None]
  - Acute respiratory distress syndrome [None]

NARRATIVE: CASE EVENT DATE: 20140520
